FAERS Safety Report 4388440-0 (Version None)
Quarter: 2004Q2

REPORT INFORMATION
  Report Type: 
  Country: None (occurrence: None)
  Receive Date: 20040625
  Receipt Date: 20040616
  Transmission Date: 20050107
  Serious: Yes (Hospitalization)
  Sender: FDA-Public Use
  Company Number: HQWYE471216JUN04

PATIENT
  Age: 84 Year
  Sex: Female

DRUGS (6)
  1. CORDARONE [Suspect]
     Indication: ATRIAL FIBRILLATION
     Dosage: 400 MG 1X PER 1 DAY
     Route: 048
     Dates: start: 20040302, end: 20040308
  2. CORDARONE [Suspect]
     Indication: ATRIAL FLUTTER
     Dosage: 400 MG 1X PER 1 DAY
     Route: 048
     Dates: start: 20040302, end: 20040308
  3. NEXIUM [Concomitant]
  4. PREVISCAN (FLUINIDONE) [Concomitant]
  5. MOTILIUM [Concomitant]
  6. SEROPRAM (CITALOPRAM HYDROBROMIDE) [Concomitant]

REACTIONS (2)
  - CARDIAC FAILURE [None]
  - CYTOLYTIC HEPATITIS [None]
